FAERS Safety Report 24539723 (Version 1)
Quarter: 2024Q4

REPORT INFORMATION
  Report Type: Spontaneous
  Country: CH (occurrence: CH)
  Receive Date: 20241023
  Receipt Date: 20241023
  Transmission Date: 20250115
  Serious: Yes (Hospitalization)
  Sender: TEVA
  Company Number: None

PATIENT
  Age: 60 Year
  Sex: Male
  Weight: 123 kg

DRUGS (4)
  1. FLUCLOXACILLIN [Interacting]
     Active Substance: FLUCLOXACILLIN
     Indication: Staphylococcal bacteraemia
     Dosage: 12 G/24H IV PERFUSION CONTINUOUS
     Route: 040
     Dates: start: 20240508, end: 20240610
  2. DAFALGAN [Interacting]
     Active Substance: ACETAMINOPHEN
     Indication: Pain
     Dosage: 4X 1 G/24H PO
     Route: 048
     Dates: start: 20240508, end: 20240610
  3. METFORMIN [Interacting]
     Active Substance: METFORMIN HYDROCHLORIDE
     Indication: Type 2 diabetes mellitus
     Route: 048
     Dates: end: 20240610
  4. JARDIANCE [Interacting]
     Active Substance: EMPAGLIFLOZIN
     Indication: Type 2 diabetes mellitus
     Route: 048
     Dates: start: 20240509, end: 20240610

REACTIONS (3)
  - Pyroglutamic acidosis [Recovered/Resolved]
  - Lactic acidosis [Recovered/Resolved]
  - Euglycaemic diabetic ketoacidosis [Recovered/Resolved]

NARRATIVE: CASE EVENT DATE: 20240610
